FAERS Safety Report 13731773 (Version 5)
Quarter: 2018Q1

REPORT INFORMATION
  Report Type: Spontaneous
  Country: US (occurrence: US)
  Receive Date: 20170707
  Receipt Date: 20180102
  Transmission Date: 20180508
  Serious: Yes (Hospitalization, Other)
  Sender: FDA-Public Use
  Company Number: PR-INCYTE CORPORATION-2017IN002083

PATIENT

DRUGS (11)
  1. JAKAFI [Suspect]
     Active Substance: RUXOLITINIB
     Dosage: 20 MG IN AM AND 10 MG IN PM ALTERNATING WITH 10 MG BID QOD
     Route: 048
     Dates: start: 201706, end: 20170918
  2. DANAZOL. [Concomitant]
     Active Substance: DANAZOL
     Indication: PRODUCT USED FOR UNKNOWN INDICATION
     Dosage: 200 MG, BID
     Route: 048
  3. JAKAFI [Suspect]
     Active Substance: RUXOLITINIB
     Dosage: 20 MG ON SATURDAY AND SUNDAY
     Route: 048
  4. JAKAFI [Suspect]
     Active Substance: RUXOLITINIB
     Indication: MYELOFIBROSIS
     Dosage: 20 MG, BID (TWICE DAILY)
     Route: 048
     Dates: start: 20160516, end: 201706
  5. ASPIRIN                            /00002701/ [Concomitant]
     Active Substance: ASPIRIN
     Indication: PRODUCT USED FOR UNKNOWN INDICATION
  6. JAKAFI [Suspect]
     Active Substance: RUXOLITINIB
     Dosage: 10 MG, BID
     Route: 048
     Dates: end: 20170905
  7. VITAMIN B12 [Concomitant]
     Active Substance: CYANOCOBALAMIN
     Indication: PRODUCT USED FOR UNKNOWN INDICATION
  8. ADVIL PM [Concomitant]
     Active Substance: DIPHENHYDRAMINE CITRATE\IBUPROFEN
     Indication: PRODUCT USED FOR UNKNOWN INDICATION
     Dosage: TABLET, PRN
     Route: 048
  9. JAKAFI [Suspect]
     Active Substance: RUXOLITINIB
     Dosage: 10 MG BID
     Route: 048
     Dates: start: 201706
  10. JAKAFI [Suspect]
     Active Substance: RUXOLITINIB
     Dosage: 10 MG DAILY
     Route: 048
     Dates: start: 20170919
  11. PERCOCET [Concomitant]
     Active Substance: ACETAMINOPHEN\OXYCODONE HYDROCHLORIDE
     Indication: FLANK PAIN
     Dosage: 1 TABLET, QD
     Route: 048

REACTIONS (24)
  - Cough [Unknown]
  - Upper respiratory tract congestion [Unknown]
  - Diarrhoea [Unknown]
  - Flank pain [Not Recovered/Not Resolved]
  - Anaemia [Unknown]
  - White blood cell count increased [Unknown]
  - Acute leukaemia [Not Recovered/Not Resolved]
  - Nausea [Unknown]
  - Cystitis [Unknown]
  - Decreased appetite [Unknown]
  - Platelet count increased [Unknown]
  - Pancytopenia [Unknown]
  - Thrombocytopenia [Unknown]
  - Weight increased [Unknown]
  - Early satiety [Unknown]
  - Abdominal pain [Unknown]
  - Vomiting [Unknown]
  - Fatigue [Not Recovered/Not Resolved]
  - Off label use [Unknown]
  - Pneumonia [Unknown]
  - Nasopharyngitis [Unknown]
  - Weight decreased [Unknown]
  - Intentional product misuse [Unknown]
  - Splenomegaly [Unknown]

NARRATIVE: CASE EVENT DATE: 201605
